FAERS Safety Report 12987676 (Version 1)
Quarter: 2016Q4

REPORT INFORMATION
  Report Type: Spontaneous
  Country: US (occurrence: US)
  Receive Date: 20161130
  Receipt Date: 20161130
  Transmission Date: 20170207
  Serious: Yes (Other)
  Sender: FDA-Public Use
  Company Number: None

PATIENT
  Age: 68 Year
  Sex: Female
  Weight: 53.12 kg

DRUGS (6)
  1. MOXIFLOXACIN HCL 400 MG TABLET [Suspect]
     Active Substance: MOXIFLOXACIN HYDROCHLORIDE
     Indication: ORAL INFECTION
     Dosage: ?          QUANTITY:/ TAG/AT;?
     Route: 048
     Dates: start: 20160910, end: 20160922
  2. VITAMIN D3 [Concomitant]
     Active Substance: CHOLECALCIFEROL
  3. FISH OIL [Concomitant]
     Active Substance: FISH OIL
  4. CALCIUM [Concomitant]
     Active Substance: CALCIUM
  5. CENTRUM SILVER [Concomitant]
     Active Substance: MINERALS\VITAMINS
  6. OSTEO BIFLEX [Concomitant]
     Active Substance: CHONDROITIN SULFATE A\GLUCOSAMINE

REACTIONS (5)
  - Rash generalised [None]
  - Lymphadenopathy [None]
  - Rash erythematous [None]
  - Pyrexia [None]
  - Rash pruritic [None]

NARRATIVE: CASE EVENT DATE: 20160922
